FAERS Safety Report 8588655-1 (Version None)
Quarter: 2012Q3

REPORT INFORMATION
  Report Type: 
  Country: None (occurrence: None)
  Receive Date: 20120813
  Receipt Date: 20120808
  Transmission Date: 20120928
  Serious: Yes (Other)
  Sender: FDA-Public Use
  Company Number: PHHY2012JP069210

PATIENT
  Sex: Male
  Weight: 56 kg

DRUGS (14)
  1. PROGRAF [Suspect]
     Dosage: 4 MG, DAILY
     Route: 048
     Dates: start: 20110912
  2. ENALAPRIL MALEATE [Concomitant]
     Dosage: 215 MG, UNK
     Route: 048
  3. PREDNISOLONE [Concomitant]
     Dosage: 4 MG, UNK
     Route: 048
     Dates: start: 20110912
  4. CRESTOR [Concomitant]
     Dosage: 10 MG, UNK
  5. ZETIA [Concomitant]
     Dosage: 10 MG, UNK
     Route: 048
  6. CERTICAN [Suspect]
     Indication: HEART TRANSPLANT
     Dosage: 1.5 MG, DAILY
     Route: 048
     Dates: start: 20110912, end: 20110919
  7. PROGRAF [Suspect]
     Dosage: 3 MG, DAILY
     Route: 048
     Dates: start: 20110924
  8. LANSOPRAZOLE [Concomitant]
     Dosage: 15 MG, UNK
     Route: 048
  9. PROGRAF [Suspect]
     Dosage: 3.2 MG, DAILY
     Route: 048
     Dates: start: 20110921, end: 20110923
  10. PREDNISOLONE [Concomitant]
     Dosage: 8 MG, UNK
     Route: 048
     Dates: start: 20110912
  11. PROGRAF [Suspect]
     Dosage: 3.5 MG, DAILY
     Route: 048
     Dates: start: 20110912
  12. VALGANCICLOVIR [Suspect]
     Dosage: 450 MG, QD
     Route: 048
     Dates: start: 20110707, end: 20110920
  13. CELL CEPT [Concomitant]
     Dosage: 500 MG, UNK
     Route: 048
     Dates: start: 20110912
  14. CERTICAN [Suspect]
     Dosage: 1 MG, DAILY
     Route: 048
     Dates: start: 20110920

REACTIONS (1)
  - FEBRILE NEUTROPENIA [None]
